FAERS Safety Report 6604211-6 (Version None)
Quarter: 2010Q1

REPORT INFORMATION
  Report Type: 
  Country: None (occurrence: None)
  Receive Date: 20100226
  Receipt Date: 20090831
  Transmission Date: 20100710
  Serious: No
  Sender: FDA-Public Use
  Company Number: A0795483A

PATIENT
  Age: 18 Year
  Sex: Female

DRUGS (4)
  1. LAMICTAL CD [Suspect]
     Indication: DEPRESSION
     Dosage: 50MG PER DAY
     Route: 048
     Dates: start: 20060101
  2. BIRTH CONTROL PILLS [Suspect]
     Indication: OVARIAN CYST
  3. LEXAPRO [Concomitant]
  4. ZYPREXA [Concomitant]

REACTIONS (7)
  - DYSMENORRHOEA [None]
  - IRRITABILITY [None]
  - MENSTRUATION IRREGULAR [None]
  - OVARIAN CYST [None]
  - PAIN [None]
  - RASH [None]
  - WEIGHT INCREASED [None]
